FAERS Safety Report 5743131-6 (Version None)
Quarter: 2008Q2

REPORT INFORMATION
  Report Type: 
  Country: None (occurrence: None)
  Receive Date: 20080519
  Receipt Date: 20080508
  Transmission Date: 20081010
  Serious: Yes (Other)
  Sender: FDA-Public Use
  Company Number: DE-ELI_LILLY_AND_COMPANY-DE200804004763

PATIENT
  Sex: Female

DRUGS (10)
  1. CYMBALTA [Suspect]
     Indication: PAIN
     Dosage: 60 MG, DAILY (1/D)
     Route: 048
     Dates: start: 20080201, end: 20080311
  2. MACROGOL [Concomitant]
     Dosage: UNK, UNKNOWN
     Route: 065
  3. HYDROCHLOROTHIAZIDE [Concomitant]
     Dosage: 12.5 MG, UNKNOWN
     Route: 065
  4. IBUPROFEN TABLETS [Concomitant]
     Dosage: 400 MG, UNKNOWN
     Route: 065
  5. SORTIS [Concomitant]
     Dosage: 10 MG, UNKNOWN
     Route: 065
  6. CARBIDOPA + LEVODOPA [Concomitant]
     Indication: PARKINSON'S DISEASE
     Dosage: 100 MG, UNKNOWN
  7. BISOPROLOL FUMARATE [Concomitant]
     Indication: HYPERTENSION
     Dosage: 2.5 MG, UNKNOWN
     Route: 065
  8. ATACAND HCT [Concomitant]
     Indication: HYPERTENSION
     Dosage: 8 MG, UNKNOWN
     Route: 065
  9. L-THYROX [Concomitant]
     Dosage: 50 MG, UNKNOWN
     Route: 065
  10. REQUIP [Concomitant]
     Indication: PARKINSON'S DISEASE
     Dosage: 2 MG, UNKNOWN
     Route: 065

REACTIONS (3)
  - CEREBROVASCULAR ACCIDENT [None]
  - DEMENTIA [None]
  - HYPONATRAEMIA [None]
